FAERS Safety Report 20089242 (Version 1)
Quarter: 2021Q4

REPORT INFORMATION
  Report Type: Spontaneous
  Country: NL (occurrence: NL)
  Receive Date: 20211119
  Receipt Date: 20211119
  Transmission Date: 20220303
  Serious: Yes (Life-Threatening, Hospitalization)
  Sender: FDA-Public Use
  Company Number: None

PATIENT
  Sex: Male

DRUGS (1)
  1. BUPROPION [Suspect]
     Active Substance: BUPROPION
     Indication: Smoking cessation therapy
     Dosage: 1 , BRAND NAME NOT SPECIFIED
     Dates: start: 20210730, end: 20211024

REACTIONS (2)
  - Suicide attempt [Recovering/Resolving]
  - Depressed mood [Recovering/Resolving]
